FAERS Safety Report 18763963 (Version 1)
Quarter: 2021Q1

REPORT INFORMATION
  Report Type: Spontaneous
  Country: US (occurrence: US)
  Receive Date: 20210120
  Receipt Date: 20210120
  Transmission Date: 20210419
  Serious: Yes (Other)
  Sender: FDA-Public Use
  Company Number: US-BAYER-2021-023730

PATIENT
  Age: 38 Year
  Sex: Female

DRUGS (4)
  1. CALCIUM CARBONATE. [Suspect]
     Active Substance: CALCIUM CARBONATE
  2. CALCIUM ACETATE. [Suspect]
     Active Substance: CALCIUM ACETATE
  3. CALCITRIOL. [Suspect]
     Active Substance: CALCITRIOL
  4. NATPARA (PARATHYROID HORMONE) [Suspect]
     Active Substance: PARATHYROID HORMONE

REACTIONS (1)
  - Calciphylaxis [None]
